FAERS Safety Report 25706442 (Version 1)
Quarter: 2025Q3

REPORT INFORMATION
  Report Type: Spontaneous
  Country: US (occurrence: None)
  Receive Date: 20250820
  Receipt Date: 20250820
  Transmission Date: 20251020
  Serious: Yes (Hospitalization)
  Sender: FDA-CTU
  Company Number: None

PATIENT
  Age: 69 Year
  Sex: Male

DRUGS (21)
  1. TACROLIMUS [Suspect]
     Active Substance: TACROLIMUS
     Indication: Lung transplant
     Dosage: 2.5 MG TWICE A DAY ORAL ?
     Route: 048
     Dates: start: 20250410
  2. MYCOPHENOLATE MOFETIL [Suspect]
     Active Substance: MYCOPHENOLATE MOFETIL
     Indication: Lung transplant
     Dosage: 250 MG TWICE A DAY ORAL ?
     Route: 048
     Dates: start: 20250410
  3. Atovaquone 750mg/5mL [Concomitant]
     Dates: start: 20250620, end: 20250720
  4. AZITHROMYCIN ANHYDROUS [Concomitant]
     Active Substance: AZITHROMYCIN ANHYDROUS
     Dates: start: 20250410, end: 20250802
  5. Calcium citrate + vitamin D3 [Concomitant]
     Dates: start: 20250410
  6. CRESEMBA [Concomitant]
     Active Substance: ISAVUCONAZONIUM SULFATE
     Dates: start: 20250410, end: 20250619
  7. MINERALS\VITAMINS [Concomitant]
     Active Substance: MINERALS\VITAMINS
     Dates: start: 20250410
  8. ENOXAPARIN [Concomitant]
     Active Substance: ENOXAPARIN
     Dates: start: 20250514, end: 20250528
  9. FINASTERIDE [Concomitant]
     Active Substance: FINASTERIDE
     Dates: start: 20250410, end: 20250802
  10. FUROSEMIDE [Concomitant]
     Active Substance: FUROSEMIDE
     Dates: start: 20250410, end: 20250802
  11. GABAPENTIN [Concomitant]
     Active Substance: GABAPENTIN
     Dates: start: 20250410
  12. MAGNESIUM [Concomitant]
     Active Substance: MAGNESIUM
     Dates: start: 20250410
  13. NIVESTYM [Concomitant]
     Active Substance: FILGRASTIM-AAFI
     Dates: start: 20250514
  14. OMEPRAZOLE [Concomitant]
     Active Substance: OMEPRAZOLE
     Dates: start: 20250410, end: 20250802
  15. PRAVASTATIN [Concomitant]
     Active Substance: PRAVASTATIN
     Dates: start: 20250410
  16. PREDNISONE [Concomitant]
     Active Substance: PREDNISONE
     Dates: start: 20250410, end: 20250802
  17. SIMETHICONE (DIMETHICONE) [Concomitant]
     Active Substance: DIMETHICONE
     Dates: start: 20250502
  18. Bactrim 400-80 [Concomitant]
     Dates: start: 20250410, end: 20250802
  19. VALGANCICLOVIR HYDROCHLORIDE [Concomitant]
     Active Substance: VALGANCICLOVIR HYDROCHLORIDE
     Dates: start: 20250410
  20. Vitamin D 50,000 units [Concomitant]
     Dates: start: 20250410
  21. VORICONAZOLE [Concomitant]
     Active Substance: VORICONAZOLE
     Dates: start: 20250620

REACTIONS (1)
  - Infection [None]

NARRATIVE: CASE EVENT DATE: 20250811
